FAERS Safety Report 7287488-6 (Version None)
Quarter: 2011Q1

REPORT INFORMATION
  Report Type: 
  Country: None (occurrence: None)
  Receive Date: 20110211
  Receipt Date: 20110202
  Transmission Date: 20110831
  Serious: Yes (Death, Hospitalization)
  Sender: FDA-Public Use
  Company Number: JP-BRISTOL-MYERS SQUIBB COMPANY-15514268

PATIENT
  Age: 69 Year
  Sex: Male
  Weight: 66 kg

DRUGS (1)
  1. SPRYCEL [Suspect]
     Indication: ACUTE LYMPHOCYTIC LEUKAEMIA
     Dosage: 50X2MG/DAY(12JAN-18JAN11) 50XLMG(19JAN-24JAN11) 70X1MG(19JAN-24JAN11) 50X2MG(25JAN-26JAN11)
     Route: 048
     Dates: start: 20101021, end: 20110126

REACTIONS (3)
  - GASTROINTESTINAL HAEMORRHAGE [None]
  - PRINZMETAL ANGINA [None]
  - VENTRICULAR ARRHYTHMIA [None]
